FAERS Safety Report 21400745 (Version 1)
Quarter: 2022Q4

REPORT INFORMATION
  Report Type: Spontaneous
  Country: US (occurrence: US)
  Receive Date: 20221003
  Receipt Date: 20221003
  Transmission Date: 20230112
  Serious: Yes (Other)
  Sender: FDA-Public Use
  Company Number: US-NOVOPROD-963126

PATIENT
  Age: 48 Year
  Sex: Female

DRUGS (3)
  1. OZEMPIC [Suspect]
     Active Substance: SEMAGLUTIDE
     Indication: Glucose tolerance impaired
     Dosage: 0.25 MG
     Route: 058
     Dates: start: 20220909
  2. OZEMPIC [Suspect]
     Active Substance: SEMAGLUTIDE
     Indication: Postprandial hypoglycaemia
  3. OZEMPIC [Suspect]
     Active Substance: SEMAGLUTIDE
     Indication: Hyperinsulinism

REACTIONS (4)
  - Cardiac flutter [Not Recovered/Not Resolved]
  - Eye pain [Not Recovered/Not Resolved]
  - Heart rate increased [Not Recovered/Not Resolved]
  - Product use in unapproved indication [Not Recovered/Not Resolved]

NARRATIVE: CASE EVENT DATE: 20220909
